FAERS Safety Report 5507578-5 (Version None)
Quarter: 2007Q4

REPORT INFORMATION
  Report Type: 
  Country: None (occurrence: None)
  Receive Date: 20071105
  Receipt Date: 20071105
  Transmission Date: 20080405
  Serious: Yes (Hospitalization)
  Sender: FDA-Public Use
  Company Number: None

PATIENT
  Sex: Female
  Weight: 109 kg

DRUGS (6)
  1. CISPLATIN [Suspect]
     Dosage: 100 MG
  2. DOXORUBICIN HYDROCHLORIDE [Suspect]
     Dosage: 90 MG
  3. G-CSF (FILGRASTIM, AMGEN) [Suspect]
     Dosage: 480 MG
  4. TAXOL [Suspect]
     Dosage: 320 MG
  5. ENOXAPARIN SODIUM [Concomitant]
  6. METOPROLOL TARTRATE [Concomitant]

REACTIONS (11)
  - ABDOMINAL PAIN [None]
  - BACTERIURIA [None]
  - CARDIO-RESPIRATORY ARREST [None]
  - DYSPNOEA [None]
  - FEBRILE NEUTROPENIA [None]
  - FUNGAEMIA [None]
  - GRAND MAL CONVULSION [None]
  - HYPOTENSION [None]
  - MULTI-ORGAN FAILURE [None]
  - RENAL FAILURE [None]
  - SEPSIS [None]
